FAERS Safety Report 5977131-8 (Version None)
Quarter: 2008Q4

REPORT INFORMATION
  Report Type: 
  Country: None (occurrence: None)
  Receive Date: 20081201
  Receipt Date: 20081201
  Transmission Date: 20090506
  Serious: Yes (Hospitalization)
  Sender: FDA-Public Use
  Company Number: None

PATIENT
  Age: 60 Year
  Sex: Male
  Weight: 85.9 kg

DRUGS (1)
  1. IOHEXOL [Suspect]
     Indication: COMPUTERISED TOMOGRAM
     Dates: start: 20081117, end: 20081117

REACTIONS (4)
  - ANGIOEDEMA [None]
  - HYPERSENSITIVITY [None]
  - HYPOTENSION [None]
  - RASH [None]
